FAERS Safety Report 13176392 (Version 5)
Quarter: 2017Q2

REPORT INFORMATION
  Report Type: Spontaneous
  Country: US (occurrence: US)
  Receive Date: 20170201
  Receipt Date: 20170602
  Transmission Date: 20170830
  Serious: Yes (Hospitalization)
  Sender: FDA-Public Use
  Company Number: US-PFIZER INC-2017038761

PATIENT
  Age: 58 Year
  Sex: Female
  Weight: 116.5 kg

DRUGS (14)
  1. HYDROXYZINE PAMOATE. [Concomitant]
     Active Substance: HYDROXYZINE PAMOATE
     Dosage: 50 MG, UNK
  2. LIDOCAINE HCL [Suspect]
     Active Substance: LIDOCAINE HYDROCHLORIDE
     Indication: ARTHRALGIA
     Dosage: 4 ML OF 1%
     Route: 014
     Dates: end: 20161222
  3. MARCAINE [Suspect]
     Active Substance: BUPIVACAINE HYDROCHLORIDE
     Indication: OSTEOARTHRITIS
     Dosage: 2 ML OF 1%
     Route: 014
     Dates: start: 20160930
  4. MARCAINE [Suspect]
     Active Substance: BUPIVACAINE HYDROCHLORIDE
     Indication: ARTHRALGIA
     Dosage: 4 ML OF 0.25%
     Route: 014
     Dates: end: 20161222
  5. CORTISONE ACETATE. [Suspect]
     Active Substance: CORTISONE ACETATE
     Indication: ARTHRALGIA
  6. KENALOG [Suspect]
     Active Substance: TRIAMCINOLONE ACETONIDE
     Indication: OSTEOARTHRITIS
     Dosage: 2ML OF 40MG/ML
     Route: 014
  7. KENALOG [Suspect]
     Active Substance: TRIAMCINOLONE ACETONIDE
     Indication: ARTHRALGIA
     Dosage: 4 ML, 40 MG/ML
     Route: 014
     Dates: end: 20161222
  8. LIPITOR [Concomitant]
     Active Substance: ATORVASTATIN CALCIUM
     Dosage: 80 MG, 1X/DAY (AT BED TIME)
  9. PANTOPRAZOLE [Concomitant]
     Active Substance: PANTOPRAZOLE
     Indication: GASTROOESOPHAGEAL REFLUX DISEASE
     Dosage: 40 MG, ONE EVERY DAY
     Route: 048
  10. LIDOCAINE HCL [Suspect]
     Active Substance: LIDOCAINE HYDROCHLORIDE
     Indication: OSTEOARTHRITIS
     Dosage: 2 ML OF 0.25%
     Route: 014
  11. CORTISONE ACETATE. [Suspect]
     Active Substance: CORTISONE ACETATE
     Indication: ARTHROPATHY
     Dosage: UNK
     Route: 014
     Dates: end: 20161222
  12. HYDROCHLOROTHIAZIDE. [Concomitant]
     Active Substance: HYDROCHLOROTHIAZIDE
     Indication: BLOOD PRESSURE MEASUREMENT
     Dosage: 12.5 MG, UNK
  13. METHYLPREDNISOLONE. [Concomitant]
     Active Substance: METHYLPREDNISOLONE
     Dosage: 4 MG, UNK
  14. OXYCODONE [Concomitant]
     Active Substance: OXYCODONE
     Dosage: ^10/325^ WHEN NEEDED

REACTIONS (15)
  - Dizziness [Not Recovered/Not Resolved]
  - Urticaria [Not Recovered/Not Resolved]
  - Tinnitus [Not Recovered/Not Resolved]
  - Headache [Not Recovered/Not Resolved]
  - Restlessness [Unknown]
  - Pain [Unknown]
  - Drug hypersensitivity [Unknown]
  - Nerve injury [Unknown]
  - Incorrect route of drug administration [Unknown]
  - Weight decreased [Unknown]
  - Tremor [Unknown]
  - Muscle injury [Unknown]
  - Vision blurred [Not Recovered/Not Resolved]
  - Dyspnoea [Unknown]
  - Gait disturbance [Not Recovered/Not Resolved]

NARRATIVE: CASE EVENT DATE: 20160930
